FAERS Safety Report 16651981 (Version 4)
Quarter: 2019Q3

REPORT INFORMATION
  Report Type: Spontaneous
  Country: US (occurrence: US)
  Receive Date: 20190731
  Receipt Date: 20190911
  Transmission Date: 20191004
  Serious: No
  Sender: FDA-Public Use
  Company Number: US-PFIZER INC-2019323226

PATIENT
  Age: 39 Year
  Sex: Female

DRUGS (12)
  1. ONDANSETRON HYDROCHLORIDE. [Concomitant]
     Active Substance: ONDANSETRON HYDROCHLORIDE
     Dosage: 4 MG, 1X/DAY (TAKE 1 TABLET BY MOUTH EVERY EVENING)
     Route: 048
  2. SYNTHROID [Concomitant]
     Active Substance: LEVOTHYROXINE SODIUM
     Dosage: 75 UG, 1X/DAY
     Route: 048
  3. QUADRIVALENT INFLUENZA VACCINE [Concomitant]
     Dosage: 0.5 ML, UNK
     Dates: start: 20160913
  4. GABAPENTIN. [Suspect]
     Active Substance: GABAPENTIN
     Indication: FIBROMYALGIA
     Dosage: 600 MG, 4X/DAY
     Route: 048
     Dates: start: 201411
  5. RIZATRIPTAN BENZOATE. [Concomitant]
     Active Substance: RIZATRIPTAN BENZOATE
     Dosage: 10 MG, AS NEEDED (ON THE TONGUE, ALLOW TO DISSOLVE AS NEEDED ONCE A DAY, NO MORE THAN 4 DAYS/WK)
     Route: 048
     Dates: start: 20181030
  6. NAPROXEN. [Concomitant]
     Active Substance: NAPROXEN
     Dosage: 500 MG, 2X/DAY
     Route: 048
     Dates: start: 20170814
  7. QUADRIVALENT INFLUENZA VACCINE [Concomitant]
     Indication: IMMUNISATION
     Dosage: 0.5 ML, UNK
     Dates: start: 20150921
  8. TOPIRAMATE. [Concomitant]
     Active Substance: TOPIRAMATE
     Dosage: 50 MG, 2X/DAY
     Route: 048
     Dates: start: 20171024
  9. OXYCODONE HYDROCHLORIDE. [Concomitant]
     Active Substance: OXYCODONE HYDROCHLORIDE
     Dosage: 10 MG, AS NEEDED (1 TABLET AS NEEDED ORALLY 6X PER DAY)
     Route: 048
     Dates: start: 20190723
  10. QUADRIVALENT INFLUENZA VACCINE [Concomitant]
     Dosage: 0.5 ML, UNK
     Dates: start: 20170926
  11. QUADRIVALENT INFLUENZA VACCINE [Concomitant]
     Dosage: 0.5 ML, UNK
     Dates: start: 20180904
  12. PHENTERMINE HCL [Concomitant]
     Active Substance: PHENTERMINE HYDROCHLORIDE
     Dosage: 37.5 MG, 1X/DAY
     Route: 048
     Dates: start: 20190723, end: 20190822

REACTIONS (2)
  - Drug ineffective for unapproved indication [Not Recovered/Not Resolved]
  - Off label use [Unknown]

NARRATIVE: CASE EVENT DATE: 201411
